FAERS Safety Report 24258352 (Version 1)
Quarter: 2024Q3

REPORT INFORMATION
  Report Type: Spontaneous
  Country: US (occurrence: US)
  Receive Date: 20240828
  Receipt Date: 20240828
  Transmission Date: 20241017
  Serious: No
  Sender: PFIZER
  Company Number: US-PFIZER INC-202400242138

PATIENT
  Sex: Male

DRUGS (9)
  1. KETOROLAC TROMETHAMINE [Interacting]
     Active Substance: KETOROLAC TROMETHAMINE
     Indication: Neuralgia
     Dosage: UNK
  2. PROTONIX [Suspect]
     Active Substance: PANTOPRAZOLE SODIUM
     Dosage: UNK, 1X/DAY
  3. METOPROLOL TARTRATE [Suspect]
     Active Substance: METOPROLOL TARTRATE
  4. LASIX [Interacting]
     Active Substance: FUROSEMIDE
  5. GABAPENTIN [Suspect]
     Active Substance: GABAPENTIN
     Dosage: UNK, 3X/DAY
  6. TAMSULOSIN [Suspect]
     Active Substance: TAMSULOSIN
  7. DILAUDID [Suspect]
     Active Substance: HYDROMORPHONE HYDROCHLORIDE
     Dosage: UNK, 3X/DAY
  8. AMITRIPTYLINE [Suspect]
     Active Substance: AMITRIPTYLINE
  9. POTASSIUM [Suspect]
     Active Substance: POTASSIUM

REACTIONS (2)
  - Potentiating drug interaction [Unknown]
  - Labelled drug-drug interaction medication error [Unknown]
